FAERS Safety Report 14498707 (Version 1)
Quarter: 2018Q1

REPORT INFORMATION
  Report Type: Spontaneous
  Country: US (occurrence: US)
  Receive Date: 20180207
  Receipt Date: 20180207
  Transmission Date: 20180509
  Serious: No
  Sender: FDA-Public Use
  Company Number: US-TEVA-2018-US-846143

PATIENT
  Age: 68 Year
  Sex: Male

DRUGS (2)
  1. CLONAZEPAM. [Suspect]
     Active Substance: CLONAZEPAM
     Indication: SLEEP DISORDER
     Dosage: 4 MILLIGRAM DAILY; HS
     Route: 065
  2. TEMAZEPAM. [Suspect]
     Active Substance: TEMAZEPAM
     Dosage: HS
     Route: 065

REACTIONS (6)
  - Hangover [Unknown]
  - Product use in unapproved indication [Unknown]
  - Wrong technique in product usage process [Unknown]
  - Anxiety [Unknown]
  - Tremor [Unknown]
  - Abdominal discomfort [Unknown]
